FAERS Safety Report 8613566-2 (Version None)
Quarter: 2012Q3

REPORT INFORMATION
  Report Type: 
  Country: None (occurrence: None)
  Receive Date: 20120823
  Receipt Date: 20120808
  Transmission Date: 20120928
  Serious: Yes (Hospitalization, Disabling, Other)
  Sender: FDA-Public Use
  Company Number: US-009507513-1203USA03475

PATIENT

DRUGS (2)
  1. FOSAMAX [Suspect]
     Indication: OSTEOPOROSIS PROPHYLAXIS
     Dosage: 70 MG, UNK
     Route: 048
     Dates: start: 19971229, end: 20110401
  2. FOSAMAX [Suspect]
     Dosage: 70 MG, UNK
     Route: 048
     Dates: start: 20081110

REACTIONS (44)
  - FRACTURE NONUNION [None]
  - CATHETERISATION CARDIAC [None]
  - FOOT DEFORMITY [None]
  - MORTON'S NEUROMA [None]
  - PALPITATIONS [None]
  - FRACTURE DELAYED UNION [None]
  - PNEUMONIA [None]
  - OSTEOPOROSIS [None]
  - INCREASED TENDENCY TO BRUISE [None]
  - POST PROCEDURAL COMPLICATION [None]
  - HYSTERECTOMY [None]
  - BASAL CELL CARCINOMA [None]
  - MEDICAL DEVICE REMOVAL [None]
  - STRESS FRACTURE [None]
  - HAND FRACTURE [None]
  - ARTHRALGIA [None]
  - VITREOUS DETACHMENT [None]
  - DYSPNOEA [None]
  - MUSCULOSKELETAL PAIN [None]
  - GASTROOESOPHAGEAL REFLUX DISEASE [None]
  - CARDIAC MURMUR [None]
  - CARDIAC DISORDER [None]
  - PAIN IN EXTREMITY [None]
  - DEVICE FAILURE [None]
  - IMPAIRED HEALING [None]
  - ATRIAL FLUTTER [None]
  - ATRIAL TACHYCARDIA [None]
  - MUSCULOSKELETAL DISORDER [None]
  - TACHYARRHYTHMIA [None]
  - CARDIAC FAILURE CONGESTIVE [None]
  - OPEN REDUCTION OF FRACTURE [None]
  - FEMUR FRACTURE [None]
  - FOOT OPERATION [None]
  - TINNITUS [None]
  - HYPERTENSION [None]
  - CHEST PAIN [None]
  - BACK PAIN [None]
  - ATRIAL FIBRILLATION [None]
  - ASPIRATION BREAST [None]
  - ENDODONTIC PROCEDURE [None]
  - FOOT FRACTURE [None]
  - SPINAL OSTEOARTHRITIS [None]
  - PERICARDIAL DISEASE [None]
  - GASTROINTESTINAL HAEMORRHAGE [None]
